FAERS Safety Report 5228737-5 (Version None)
Quarter: 2007Q1

REPORT INFORMATION
  Report Type: 
  Country: None (occurrence: None)
  Receive Date: 20070131
  Receipt Date: 20070123
  Transmission Date: 20070707
  Serious: Yes (Hospitalization)
  Sender: FDA-Public Use
  Company Number: 2007SP000350

PATIENT
  Age: 69 Year
  Sex: Male
  Weight: 61 kg

DRUGS (4)
  1. TEMODAL [Suspect]
     Indication: METASTASES TO CENTRAL NERVOUS SYSTEM
     Dosage: PO
     Route: 048
     Dates: start: 20060828, end: 20060905
  2. TEMODAL [Suspect]
     Indication: NON-SMALL CELL LUNG CANCER
     Dosage: PO
     Route: 048
     Dates: start: 20060828, end: 20060905
  3. RADIATION THERAPY (THERAPEUTIC RADIOPHARMACEUTICALS) [Suspect]
     Indication: METASTASES TO CENTRAL NERVOUS SYSTEM
     Dates: start: 20060828, end: 20060914
  4. RADIATION THERAPY (THERAPEUTIC RADIOPHARMACEUTICALS) [Suspect]
     Indication: NON-SMALL CELL LUNG CANCER
     Dates: start: 20060828, end: 20060914

REACTIONS (10)
  - APHASIA [None]
  - ASTHENIA [None]
  - CONVULSION [None]
  - DERMATITIS ALLERGIC [None]
  - DYSLIPIDAEMIA [None]
  - GASTROINTESTINAL HAEMORRHAGE [None]
  - HAEMORRHAGIC TRANSFORMATION STROKE [None]
  - HAEMORRHOIDS [None]
  - HYPONATRAEMIA [None]
  - REFUSAL OF TREATMENT BY PATIENT [None]
